FAERS Safety Report 4676745-5 (Version None)
Quarter: 2005Q2

REPORT INFORMATION
  Report Type: 
  Country: None (occurrence: None)
  Receive Date: 20050527
  Receipt Date: 20050512
  Transmission Date: 20051028
  Serious: Yes (Other)
  Sender: FDA-Public Use
  Company Number: 2005PV000002

PATIENT
  Age: 46 Year
  Sex: Female
  Weight: 63.5036 kg

DRUGS (6)
  1. SYMLIN [Suspect]
     Indication: DIABETES MELLITUS INSULIN-DEPENDENT
     Dosage: 15 UG;X1;SC
     Route: 058
     Dates: start: 20050511, end: 20050511
  2. NOVOLOG [Suspect]
     Indication: DIABETES MELLITUS INSULIN-DEPENDENT
     Dosage: 1 UNIT;X1;SC
     Route: 058
     Dates: start: 20050511, end: 20050511
  3. SYNTHROID [Concomitant]
  4. VYTORIN [Concomitant]
  5. ALTACE [Concomitant]
  6. MULTI-VITAMINS [Concomitant]

REACTIONS (2)
  - ERUCTATION [None]
  - HYPOGLYCAEMIA [None]
